FAERS Safety Report 21901453 (Version 2)
Quarter: 2023Q1

REPORT INFORMATION
  Report Type: Report from Study
  Country: US (occurrence: US)
  Receive Date: 20230123
  Receipt Date: 20230125
  Transmission Date: 20230417
  Serious: Yes (Death)
  Sender: FDA-Public Use
  Company Number: US-ABBVIE-4278591

PATIENT
  Sex: Male

DRUGS (3)
  1. CREON [Suspect]
     Active Substance: PANCRELIPASE AMYLASE\PANCRELIPASE LIPASE\PANCRELIPASE PROTEASE
     Indication: Product used for unknown indication
     Dosage: TIME INTERVAL: 0.33333333 DAYS: ONE CAPSULE WITH EACH MEAL
     Route: 048
     Dates: start: 20220506, end: 20220711
  2. CREON [Suspect]
     Active Substance: PANCRELIPASE AMYLASE\PANCRELIPASE LIPASE\PANCRELIPASE PROTEASE
     Indication: Product used for unknown indication
     Dosage: TIME INTERVAL: 0.33333333 DAYS: DOSAGE: 36000 UNITS 24000 AND 12000 UNITS TOGETHER WITH EACH MEAL
     Route: 048
     Dates: start: 20220712, end: 20221013
  3. CREON [Suspect]
     Active Substance: PANCRELIPASE AMYLASE\PANCRELIPASE LIPASE\PANCRELIPASE PROTEASE
     Indication: Product used for unknown indication
     Dosage: TIME INTERVAL: 0.33333333 DAYS: DOSAGE: 24000 UNITS ONE CAPSULE WITH EACH MEAL, 24000 UNITS
     Route: 048
     Dates: start: 20221014

REACTIONS (1)
  - Pancreatic carcinoma [Fatal]
